FAERS Safety Report 9915615 (Version 1)
Quarter: 2014Q1

REPORT INFORMATION
  Report Type: Spontaneous
  Country: US (occurrence: None)
  Receive Date: 20140219
  Receipt Date: 20140219
  Transmission Date: 20141002
  Serious: Yes (Disabling)
  Sender: FDA-Public Use
  Company Number: None

PATIENT
  Age: 57 Year
  Sex: Female
  Weight: 80.74 kg

DRUGS (1)
  1. ABILIFY 15 MG [Suspect]
     Indication: BIPOLAR DISORDER
     Dosage: 1 PILL ONCE DAILY
     Route: 048
     Dates: start: 20130601, end: 20131015

REACTIONS (2)
  - Gait disturbance [None]
  - Gait disturbance [None]
